FAERS Safety Report 22987218 (Version 2)
Quarter: 2023Q4

REPORT INFORMATION
  Report Type: Report from Study
  Country: ZA (occurrence: ZA)
  Receive Date: 20230926
  Receipt Date: 20231108
  Transmission Date: 20240109
  Serious: Yes (Other)
  Sender: FDA-Public Use
  Company Number: ZA-ABBVIE-5416182

PATIENT
  Age: 65 Year
  Sex: Female

DRUGS (2)
  1. OZURDEX [Suspect]
     Active Substance: DEXAMETHASONE
     Indication: Cystoid macular oedema
     Dosage: TIME INTERVAL: AS NECESSARY: STRENGTH 0.7MG, EVERY 4 TO 6 MONTHS
     Route: 031
     Dates: start: 20210521, end: 20210521
  2. OZURDEX [Suspect]
     Active Substance: DEXAMETHASONE
     Indication: Macular degeneration

REACTIONS (4)
  - Macular degeneration [Not Recovered/Not Resolved]
  - Off label use [Unknown]
  - Off label use [Unknown]
  - Uveitis [Not Recovered/Not Resolved]

NARRATIVE: CASE EVENT DATE: 20220719
